FAERS Safety Report 6928378-5 (Version None)
Quarter: 2010Q3

REPORT INFORMATION
  Report Type: 
  Country: None (occurrence: None)
  Receive Date: 20100817
  Receipt Date: 20100806
  Transmission Date: 20110219
  Serious: Yes (Other)
  Sender: FDA-Public Use
  Company Number: CZ-BAXTER-2010BH021047

PATIENT
  Age: 46 Year
  Sex: Female

DRUGS (4)
  1. GAMMAGARD LIQUID [Suspect]
     Indication: IMMUNODEFICIENCY
     Route: 042
     Dates: start: 20100618, end: 20100618
  2. GAMMAGARD LIQUID [Suspect]
     Route: 042
     Dates: start: 20100621, end: 20100621
  3. ANTIHISTAMINES [Concomitant]
     Indication: PREMEDICATION
     Dates: start: 20100621, end: 20100621
  4. CORTICOSTEROID NOS [Concomitant]
     Indication: PREMEDICATION
     Dates: start: 20100621, end: 20100621

REACTIONS (1)
  - HYPERSENSITIVITY [None]
